FAERS Safety Report 15402467 (Version 1)
Quarter: 2018Q3

REPORT INFORMATION
  Report Type: Spontaneous
  Country: US (occurrence: US)
  Receive Date: 20180915
  Receipt Date: 20180915
  Transmission Date: 20181010
  Serious: Yes (Life-Threatening, Hospitalization, Disabling)
  Sender: FDA-Public Use
  Company Number: None

PATIENT
  Age: 63 Year
  Sex: Male
  Weight: 132.75 kg

DRUGS (25)
  1. CARBOXYMETHYLCELLULOSE NA [Concomitant]
  2. CHLORTHALIDONE. [Concomitant]
     Active Substance: CHLORTHALIDONE
  3. FOLIC ACID. [Concomitant]
     Active Substance: FOLIC ACID
  4. NITROGLYCERINE [Concomitant]
     Active Substance: NITROGLYCERIN
  5. OFLOXA [Concomitant]
  6. ERGOCALCIFEROL. [Concomitant]
     Active Substance: ERGOCALCIFEROL
  7. KETOTIFEN [Concomitant]
     Active Substance: KETOTIFEN
  8. ALLOPURINOL. [Concomitant]
     Active Substance: ALLOPURINOL
  9. CYANOCOBALAMIN. [Concomitant]
     Active Substance: CYANOCOBALAMIN
  10. MULTIVITAMIN/MINERALS [Concomitant]
  11. FLUOXETINE [Concomitant]
     Active Substance: FLUOXETINE HYDROCHLORIDE
  12. LABETALOL [Concomitant]
     Active Substance: LABETALOL\LABETALOL HYDROCHLORIDE
  13. SYNTHROID [Concomitant]
     Active Substance: LEVOTHYROXINE SODIUM
  14. LIDOCAINE. [Concomitant]
     Active Substance: LIDOCAINE
  15. ACETAMINOPHEN. [Concomitant]
     Active Substance: ACETAMINOPHEN
  16. HYDRALAZINE [Concomitant]
     Active Substance: HYDRALAZINE HYDROCHLORIDE
  17. GADOLINIUM [Suspect]
     Active Substance: GADOLINIUM
     Indication: NUCLEAR MAGNETIC RESONANCE IMAGING
     Route: 042
  18. DOCUSATE NA [Concomitant]
     Active Substance: DOCUSATE
  19. DOXYXYXLINE HYCLATE [Concomitant]
     Active Substance: DOXYCYCLINE HYCLATE
  20. LISINOPRIL. [Concomitant]
     Active Substance: LISINOPRIL
  21. CHOLECALCIFEROL [Concomitant]
     Active Substance: CHOLECALCIFEROL
  22. FISH OIL [Concomitant]
     Active Substance: FISH OIL
  23. MAGENSIUM OXIDE [Concomitant]
  24. APIXABAN [Concomitant]
     Active Substance: APIXABAN
  25. ERYTHROMYCIN. [Concomitant]
     Active Substance: ERYTHROMYCIN

REACTIONS (50)
  - Myalgia [None]
  - Movement disorder [None]
  - Peripheral swelling [None]
  - Tinnitus [None]
  - Balance disorder [None]
  - Vertigo [None]
  - Speech disorder [None]
  - Thinking abnormal [None]
  - Hypoaesthesia [None]
  - Muscle spasms [None]
  - Musculoskeletal stiffness [None]
  - Sleep apnoea syndrome [None]
  - Dysuria [None]
  - Cognitive disorder [None]
  - Arthralgia [None]
  - Hypoacusis [None]
  - Memory impairment [None]
  - Incontinence [None]
  - Cerebrovascular accident [None]
  - Dyskinesia [None]
  - Malaise [None]
  - Pain [None]
  - Asthenia [None]
  - Fatigue [None]
  - Dysphonia [None]
  - Muscular weakness [None]
  - Erectile dysfunction [None]
  - Renal disorder [None]
  - Deafness [None]
  - Back pain [None]
  - Musculoskeletal pain [None]
  - Muscle rupture [None]
  - Muscle twitching [None]
  - Joint stiffness [None]
  - Motor dysfunction [None]
  - Atrial fibrillation [None]
  - Eye irritation [None]
  - Eye pain [None]
  - Hepatic lesion [None]
  - Headache [None]
  - Musculoskeletal chest pain [None]
  - Pain in extremity [None]
  - Dysphagia [None]
  - Loss of personal independence in daily activities [None]
  - Pain in jaw [None]
  - Toothache [None]
  - Dizziness [None]
  - Paraesthesia [None]
  - Muscle contractions involuntary [None]
  - Joint range of motion decreased [None]

NARRATIVE: CASE EVENT DATE: 20170819
